FAERS Safety Report 22001927 (Version 3)
Quarter: 2023Q1

REPORT INFORMATION
  Report Type: Spontaneous
  Country: JP (occurrence: JP)
  Receive Date: 20230216
  Receipt Date: 20230315
  Transmission Date: 20230418
  Serious: Yes (Other)
  Sender: FDA-Public Use
  Company Number: JP-BRISTOL-MYERS SQUIBB COMPANY-2023-020878

PATIENT
  Age: 85 Year
  Sex: Female
  Weight: 47.0 kg

DRUGS (7)
  1. REVLIMID [Suspect]
     Active Substance: LENALIDOMIDE
     Indication: Follicular lymphoma
     Dates: start: 20220623, end: 20220713
  2. REVLIMID [Suspect]
     Active Substance: LENALIDOMIDE
     Dates: start: 20220721, end: 20220808
  3. RITUXIMAB [Suspect]
     Active Substance: RITUXIMAB
     Indication: Follicular lymphoma
     Dates: start: 20220630
  4. RITUXIMAB [Suspect]
     Active Substance: RITUXIMAB
     Dates: start: 20220707
  5. RITUXIMAB [Suspect]
     Active Substance: RITUXIMAB
     Dates: start: 20220714
  6. RITUXIMAB [Suspect]
     Active Substance: RITUXIMAB
     Dates: start: 20220721
  7. RITUXIMAB [Suspect]
     Active Substance: RITUXIMAB
     Dates: start: 20220623

REACTIONS (1)
  - COVID-19 pneumonia [Unknown]

NARRATIVE: CASE EVENT DATE: 20220101
